FAERS Safety Report 13944748 (Version 1)
Quarter: 2017Q3

REPORT INFORMATION
  Report Type: Spontaneous
  Country: US (occurrence: US)
  Receive Date: 20170907
  Receipt Date: 20170907
  Transmission Date: 20171128
  Serious: No
  Sender: FDA-Public Use
  Company Number: US-ROCHE-1318575

PATIENT
  Sex: Male

DRUGS (3)
  1. MINERAL OIL. [Concomitant]
     Active Substance: MINERAL OIL
     Indication: CONSTIPATION
     Route: 048
  2. RITUXAN [Suspect]
     Active Substance: RITUXIMAB
     Indication: BLEPHARITIS
     Route: 065
  3. FIBER PILLS [Concomitant]
     Indication: CONSTIPATION
     Route: 048

REACTIONS (2)
  - Constipation [Unknown]
  - Peripheral swelling [Recovered/Resolved]
